FAERS Safety Report 12302084 (Version 1)
Quarter: 2016Q2

REPORT INFORMATION
  Report Type: Report from Study
  Country: FR (occurrence: FR)
  Receive Date: 20160425
  Receipt Date: 20160425
  Transmission Date: 20160815
  Serious: Yes (Other)
  Sender: FDA-Public Use
  Company Number: FR-EMD SERONO-8078211

PATIENT

DRUGS (1)
  1. INTERFERON BETA-1A [Suspect]
     Active Substance: INTERFERON BETA-1A
     Indication: RELAPSING-REMITTING MULTIPLE SCLEROSIS

REACTIONS (24)
  - Anal abscess [Unknown]
  - Cholecystitis [Unknown]
  - Aspartate aminotransferase increased [Unknown]
  - Alanine aminotransferase increased [Unknown]
  - Paraesthesia [Unknown]
  - Diarrhoea [Unknown]
  - Irritability [Unknown]
  - Headache [Unknown]
  - Forearm fracture [Unknown]
  - Back pain [Unknown]
  - Insomnia [Unknown]
  - Chronic obstructive pulmonary disease [Unknown]
  - Gallbladder disorder [Unknown]
  - Intervertebral disc disorder [Unknown]
  - Nasopharyngitis [Unknown]
  - Neutropenia [Unknown]
  - Panic attack [Unknown]
  - Balance disorder [Unknown]
  - Venous stenosis [Unknown]
  - Alopecia [Unknown]
  - Pain in extremity [Unknown]
  - Influenza like illness [Unknown]
  - Asthenia [Unknown]
  - Cervical polyp [Unknown]
